FAERS Safety Report 9658043 (Version 4)
Quarter: 2013Q4

REPORT INFORMATION
  Report Type: Report from Study
  Country: JP (occurrence: JP)
  Receive Date: 20131030
  Receipt Date: 20131217
  Transmission Date: 20140711
  Serious: Yes (Life-Threatening, Hospitalization)
  Sender: FDA-Public Use
  Company Number: JP-SA-2013SA098448

PATIENT
  Age: 18 Year
  Sex: Male
  Weight: 40 kg

DRUGS (10)
  1. EVOLTRA [Suspect]
     Indication: ACUTE LYMPHOCYTIC LEUKAEMIA RECURRENT
     Route: 042
     Dates: start: 20130918, end: 20130922
  2. NORMAL SALINE [Concomitant]
     Dosage: 1 BAG, QD
     Route: 041
     Dates: start: 20130917, end: 20130917
  3. NORMAL SALINE [Concomitant]
     Dosage: 1 BAG, QD
     Route: 042
     Dates: start: 20130918, end: 20130922
  4. STRONG NEO-MINOPHAGEN C [Concomitant]
     Dosage: 40 ML SYRINGE
     Route: 042
     Dates: start: 20130917, end: 20130923
  5. SOLDEM 3A [Concomitant]
     Dosage: SOLDEM 3A INFUSION 1000ML
     Route: 041
     Dates: start: 20130917, end: 20130923
  6. MEYLON [Concomitant]
     Dosage: MEYLON INJECTION7% 20 ML (1 AMPULE, BID)
     Route: 041
     Dates: start: 20130917, end: 20130923
  7. KCL [Concomitant]
     Dosage: KCL INJECTION 20MEQ KIT ^TERUMO^ 20 ML (2 KITS), QD
     Route: 041
     Dates: start: 20130917, end: 20130917
  8. BFLUID [Concomitant]
     Dosage: 1 KIT, QD
     Route: 041
     Dates: start: 20130924, end: 20130928
  9. KYTRIL [Concomitant]
     Dosage: 1 BAG. BID
     Route: 041
     Dates: start: 20130918, end: 20130922
  10. SOLU-CORTEF [Concomitant]
     Dosage: SOLU-CORTEF INJECTION 100 MG
     Route: 041
     Dates: start: 20130918, end: 20130922

REACTIONS (3)
  - Pneumonia [Not Recovered/Not Resolved]
  - Platelet count decreased [Not Recovered/Not Resolved]
  - Anaemia [Not Recovered/Not Resolved]
